FAERS Safety Report 25433445 (Version 1)
Quarter: 2025Q2

REPORT INFORMATION
  Report Type: Spontaneous
  Country: US (occurrence: None)
  Receive Date: 20250613
  Receipt Date: 20250613
  Transmission Date: 20250717
  Serious: No
  Sender: MDD OPERATIONS
  Company Number: US-MDD US Operations-MDD202410-003959

PATIENT
  Age: 81 Year
  Sex: Female

DRUGS (3)
  1. APOKYN [Suspect]
     Active Substance: APOMORPHINE HYDROCHLORIDE
     Indication: Parkinson^s disease
     Dates: start: 20241015
  2. APOKYN [Suspect]
     Active Substance: APOMORPHINE HYDROCHLORIDE
     Dates: start: 20241016
  3. APOKYN [Suspect]
     Active Substance: APOMORPHINE HYDROCHLORIDE
     Route: 058
     Dates: start: 20241107

REACTIONS (5)
  - Feeling abnormal [Unknown]
  - Feeling abnormal [Recovering/Resolving]
  - Nausea [Not Recovered/Not Resolved]
  - Nausea [Unknown]
  - Drug ineffective [Unknown]

NARRATIVE: CASE EVENT DATE: 20241016
